FAERS Safety Report 13536247 (Version 1)
Quarter: 2017Q2

REPORT INFORMATION
  Report Type: Spontaneous
  Country: US (occurrence: US)
  Receive Date: 20170511
  Receipt Date: 20170511
  Transmission Date: 20170830
  Serious: No
  Sender: FDA-Public Use
  Company Number: None

PATIENT
  Age: 69 Year
  Sex: Female

DRUGS (10)
  1. DEXILANT [Concomitant]
     Active Substance: DEXLANSOPRAZOLE
  2. MIRALAX [Concomitant]
     Active Substance: POLYETHYLENE GLYCOL 3350
  3. OCALIVA [Suspect]
     Active Substance: OBETICHOLIC ACID
     Indication: BILIARY CIRRHOSIS PRIMARY
     Route: 048
     Dates: start: 20170121
  4. CALCIUM [Concomitant]
     Active Substance: CALCIUM
  5. PROCARDIA [Concomitant]
     Active Substance: NIFEDIPINE
  6. URSIDIOL LIVER MEDICATION URSIDIOL 300MG [Concomitant]
     Active Substance: URSODIOL
  7. FLAX SEED [Concomitant]
     Active Substance: FLAX SEED
  8. MULTIVITAMIN [Concomitant]
     Active Substance: VITAMINS
  9. STOOL SOFTENER (DOCUSATE) [Concomitant]
     Active Substance: DOCUSATE
  10. SIMVASTATIN. [Concomitant]
     Active Substance: SIMVASTATIN

REACTIONS (1)
  - Pruritus [None]
